FAERS Safety Report 6074345-6 (Version None)
Quarter: 2009Q1

REPORT INFORMATION
  Report Type: 
  Country: None (occurrence: None)
  Receive Date: 20090211
  Receipt Date: 20090209
  Transmission Date: 20090719
  Serious: Yes (Other)
  Sender: FDA-Public Use
  Company Number: US-B.I. PHARMACEUTICALS,INC./RIDGEFIELD-2008-BP-15750BP

PATIENT
  Age: 57 Year
  Sex: Female
  Weight: 100 kg

DRUGS (3)
  1. CATAPRES-TTS-1 [Suspect]
     Indication: HYPERTENSION
     Dosage: .2MG
     Route: 061
     Dates: start: 20080701, end: 20080925
  2. HRT PATCH [Concomitant]
     Indication: MENOPAUSE
     Route: 061
  3. CLONIDINE HCL [Concomitant]
     Indication: HYPERTENSION
     Route: 048
     Dates: start: 20080401

REACTIONS (6)
  - APPLICATION SITE BLEEDING [None]
  - APPLICATION SITE IRRITATION [None]
  - APPLICATION SITE RASH [None]
  - BLOOD PRESSURE INCREASED [None]
  - SWELLING [None]
  - URTICARIA [None]
